FAERS Safety Report 7908370-4 (Version None)
Quarter: 2011Q4

REPORT INFORMATION
  Report Type: 
  Country: None (occurrence: None)
  Receive Date: 20111111
  Receipt Date: 20111102
  Transmission Date: 20120403
  Serious: Yes (Other)
  Sender: FDA-Public Use
  Company Number: FR-JNJFOC-20111009180

PATIENT
  Sex: Male
  Weight: 67.7 kg

DRUGS (7)
  1. FUROSEMIDE [Concomitant]
     Indication: CARDIAC FAILURE
     Route: 048
  2. PREVISCAN (FLUINDIONE) [Concomitant]
     Indication: CARDIAC FAILURE
     Route: 048
  3. GALANTAMINE HYDROBROMIDE [Suspect]
     Indication: DEMENTIA ALZHEIMER'S TYPE
     Route: 065
  4. VENLAFAXINE [Concomitant]
     Indication: DEPRESSION
     Route: 048
  5. BISOPROLOL [Concomitant]
     Indication: CARDIAC FAILURE
     Dosage: 1.25
     Route: 048
  6. ATACAND [Concomitant]
     Indication: HYPERTENSION
     Dosage: 1
     Route: 048
  7. GALANTAMINE HYDROBROMIDE [Suspect]
     Route: 065
     Dates: start: 20100501

REACTIONS (3)
  - SOMNOLENCE [None]
  - SLEEP APNOEA SYNDROME [None]
  - COGNITIVE DISORDER [None]
